FAERS Safety Report 8030974-1 (Version None)
Quarter: 2012Q1

REPORT INFORMATION
  Report Type: 
  Country: None (occurrence: None)
  Receive Date: 20120109
  Receipt Date: 20111230
  Transmission Date: 20120608
  Serious: Yes (Other)
  Sender: FDA-Public Use
  Company Number: FR-JNJFOC-20120102148

PATIENT
  Sex: Female

DRUGS (2)
  1. ACETAMINOPHEN [Concomitant]
     Indication: OSTEOMALACIA
     Route: 048
     Dates: start: 20090101, end: 20100403
  2. TRAMADOL HCL [Suspect]
     Indication: OSTEOMALACIA
     Route: 048
     Dates: start: 20100404, end: 20100504

REACTIONS (2)
  - TRANSVERSE PRESENTATION [None]
  - MATERNAL EXPOSURE DURING PREGNANCY [None]
